FAERS Safety Report 18504062 (Version 1)
Quarter: 2020Q4

REPORT INFORMATION
  Report Type: Report from Study
  Country: None (occurrence: US)
  Receive Date: 20201114
  Receipt Date: 20201114
  Transmission Date: 20210114
  Serious: Yes (Hospitalization)
  Sender: FDA-Public Use
  Company Number: US-ABBVIE-20K-163-3648156-00

PATIENT
  Sex: Male

DRUGS (1)
  1. HUMIRA [Suspect]
     Active Substance: ADALIMUMAB
     Indication: CROHN^S DISEASE
     Dosage: CITRATE FREE
     Route: 058

REACTIONS (5)
  - Haemoglobin decreased [Unknown]
  - Arthralgia [Unknown]
  - Peripheral swelling [Unknown]
  - Fatigue [Unknown]
  - Body temperature increased [Unknown]

NARRATIVE: CASE EVENT DATE: 2020
